FAERS Safety Report 5318169-3 (Version None)
Quarter: 2007Q1

REPORT INFORMATION
  Report Type: 
  Country: None (occurrence: None)
  Receive Date: 20070201
  Receipt Date: 20061113
  Transmission Date: 20070707
  Serious: Yes (Hospitalization)
  Sender: FDA-Public Use
  Company Number: MEDI-0005129

PATIENT
  Age: 80 Year
  Sex: Male
  Weight: 59.8748 kg

DRUGS (6)
  1. ETHYOL [Suspect]
     Dosage: SUBCUTANEOUS
     Route: 058
  2. CADUET (ATORVASTATIN CALCIUM, AMLODIPINE BESILATE) [Concomitant]
  3. CLONIDINE [Concomitant]
  4. ASPIRIN [Concomitant]
  5. AVALIDE [Concomitant]
  6. TOPROL-XL [Concomitant]

REACTIONS (2)
  - DEPRESSED LEVEL OF CONSCIOUSNESS [None]
  - HYPOTENSION [None]
